FAERS Safety Report 5890870-2 (Version None)
Quarter: 2008Q3

REPORT INFORMATION
  Report Type: 
  Country: None (occurrence: None)
  Receive Date: 20080917
  Receipt Date: 20080917
  Transmission Date: 20090109
  Serious: Yes (Other)
  Sender: FDA-Public Use
  Company Number: None

PATIENT
  Age: 27 Year
  Sex: Female
  Weight: 52.1637 kg

DRUGS (3)
  1. TIGAN [Suspect]
     Indication: DEHYDRATION
     Dosage: ONCE IM
     Route: 030
     Dates: start: 20080915, end: 20080915
  2. TIGAN [Suspect]
     Indication: NAUSEA
     Dosage: ONCE IM
     Route: 030
     Dates: start: 20080915, end: 20080915
  3. TIGAN [Suspect]
     Indication: VOMITING
     Dosage: ONCE IM
     Route: 030
     Dates: start: 20080915, end: 20080915

REACTIONS (3)
  - MUSCULAR WEAKNESS [None]
  - NEURITIS [None]
  - SCIATIC NERVE INJURY [None]
